FAERS Safety Report 6615676-8 (Version None)
Quarter: 2010Q1

REPORT INFORMATION
  Report Type: 
  Country: None (occurrence: None)
  Receive Date: 20100305
  Receipt Date: 20100225
  Transmission Date: 20100710
  Serious: Yes (Other)
  Sender: FDA-Public Use
  Company Number: VE-ROCHE-687725

PATIENT
  Age: 65 Year
  Sex: Female

DRUGS (4)
  1. HERCEPTIN [Suspect]
     Indication: BREAST CANCER
     Route: 065
     Dates: start: 20080101, end: 20091201
  2. LAPATINIB [Concomitant]
     Indication: BREAST CANCER
     Dates: start: 20080101
  3. XELODA [Concomitant]
     Indication: BREAST CANCER
     Dates: start: 20080101
  4. BONDRONAT [Concomitant]
     Dates: start: 20080101

REACTIONS (3)
  - ANAEMIA [None]
  - HYPOTHYROIDISM [None]
  - RENAL FAILURE [None]
